FAERS Safety Report 5812207-7 (Version None)
Quarter: 2008Q3

REPORT INFORMATION
  Report Type: 
  Country: None (occurrence: None)
  Receive Date: 20080714
  Receipt Date: 20080701
  Transmission Date: 20090109
  Serious: Yes (Death)
  Sender: FDA-Public Use
  Company Number: 001756

PATIENT
  Age: 44 Year
  Sex: Female

DRUGS (3)
  1. BUSULFEX [Suspect]
     Indication: STEM CELL TRANSPLANT
     Dosage: 26.8 ML, DAILY DOSE INTRAVENOUS
     Route: 042
     Dates: start: 20070930, end: 20071001
  2. ATG (ANTILYMPHOCYTE IMMUNOGLOBULIN (HORSE)) [Concomitant]
  3. MELPHALAN (MELPHALAN) [Concomitant]

REACTIONS (12)
  - CONSTIPATION [None]
  - DIARRHOEA [None]
  - ENCEPHALITIS VIRAL [None]
  - JAUNDICE [None]
  - OROPHARYNGEAL PAIN [None]
  - PRURITUS [None]
  - RENAL IMPAIRMENT [None]
  - STAPHYLOCOCCAL SEPSIS [None]
  - STEM CELL TRANSPLANT [None]
  - STOMACH DISCOMFORT [None]
  - THROMBOTIC MICROANGIOPATHY [None]
  - URTICARIA [None]
